FAERS Safety Report 24440037 (Version 1)
Quarter: 2024Q4

REPORT INFORMATION
  Report Type: Report from Study
  Country: US (occurrence: US)
  Receive Date: 20241016
  Receipt Date: 20241016
  Transmission Date: 20250115
  Serious: Yes (Hospitalization, Other)
  Sender: ABBVIE
  Company Number: US-ABBVIE-5786574

PATIENT
  Sex: Female

DRUGS (3)
  1. RINVOQ [Suspect]
     Active Substance: UPADACITINIB
     Indication: Colitis ulcerative
     Dosage: STRENGTH: 15 MG
     Route: 048
     Dates: start: 202404
  2. RINVOQ [Suspect]
     Active Substance: UPADACITINIB
     Indication: Colitis ulcerative
     Dosage: LAST ADMIN DATE 2024, FOR 8 WEEKS
     Route: 048
     Dates: start: 20240226
  3. RINVOQ [Suspect]
     Active Substance: UPADACITINIB
     Indication: Colitis ulcerative
     Route: 048

REACTIONS (9)
  - Surgery [Unknown]
  - Insomnia [Unknown]
  - Hypovitaminosis [Unknown]
  - Cervical spinal stenosis [Unknown]
  - Nerve compression [Unknown]
  - Intervertebral disc protrusion [Unknown]
  - Colitis ulcerative [Unknown]
  - Abdominal distension [Unknown]
  - Influenza [Unknown]

NARRATIVE: CASE EVENT DATE: 20240101
